FAERS Safety Report 4960782-7 (Version None)
Quarter: 2006Q1

REPORT INFORMATION
  Report Type: 
  Country: None (occurrence: None)
  Receive Date: 20060331
  Receipt Date: 20060331
  Transmission Date: 20060701
  Serious: Yes (Disabling)
  Sender: FDA-Public Use
  Company Number: None

PATIENT
  Sex: Female
  Weight: 52.1637 kg

DRUGS (1)
  1. TOPAMAX [Suspect]
     Indication: MIGRAINE
     Dosage: 25MG   QD   PO
     Route: 048
     Dates: start: 20060310, end: 20060313

REACTIONS (5)
  - DYSPEPSIA [None]
  - PAIN [None]
  - PERIORBITAL OEDEMA [None]
  - PHOTOPHOBIA [None]
  - VISION BLURRED [None]
